FAERS Safety Report 17435394 (Version 1)
Quarter: 2020Q1

REPORT INFORMATION
  Report Type: Spontaneous
  Country: DE (occurrence: DE)
  Receive Date: 20200219
  Receipt Date: 20200219
  Transmission Date: 20200409
  Serious: Yes (Hospitalization, Disabling, Other)
  Sender: FDA-Public Use
  Company Number: NVSC2020DE040292

PATIENT
  Age: 38 Year
  Sex: Female

DRUGS (4)
  1. PANTOPRAZOL [Suspect]
     Active Substance: PANTOPRAZOLE SODIUM
     Indication: GASTRITIS
     Dosage: 20 MG, QD
     Route: 048
  2. CERAZETTE (DESOGESTREL) [Suspect]
     Active Substance: DESOGESTREL
     Indication: CONTRACEPTION
     Dosage: 1 DF, QD
     Route: 048
  3. SINUPRET [Concomitant]
     Active Substance: DIETARY SUPPLEMENT\HERBALS
     Indication: UPPER RESPIRATORY TRACT INFLAMMATION
     Dosage: 3 DF, QD (DAILY DOSE: 3 DF DOSAGE FORM EVERY DAYS 3 SEPARATED DOSES)
     Route: 048
  4. SUMATRIPTAN. [Suspect]
     Active Substance: SUMATRIPTAN
     Indication: MIGRAINE
     Dosage: 100 MG
     Route: 048

REACTIONS (1)
  - Acute hepatic failure [Unknown]

NARRATIVE: CASE EVENT DATE: 20191107
